FAERS Safety Report 9999015 (Version 1)
Quarter: 2014Q1

REPORT INFORMATION
  Report Type: Spontaneous
  Country: US (occurrence: None)
  Receive Date: 20140311
  Receipt Date: 20140311
  Transmission Date: 20141002
  Serious: Yes (Disabling)
  Sender: FDA-Public Use
  Company Number: None

PATIENT
  Age: 51 Year
  Sex: Female

DRUGS (1)
  1. XELODA [Suspect]
     Dosage: 2 TABLETS BID
     Route: 048
     Dates: start: 20140101, end: 20140310

REACTIONS (4)
  - Lethargy [None]
  - Memory impairment [None]
  - Dehydration [None]
  - Depression [None]
